FAERS Safety Report 20513905 (Version 2)
Quarter: 2022Q1

REPORT INFORMATION
  Report Type: Report from Study
  Country: DK (occurrence: None)
  Receive Date: 20220224
  Receipt Date: 20220225
  Transmission Date: 20220424
  Serious: Yes (Hospitalization, Disabling, Other)
  Sender: FDA-Public Use
  Company Number: DK-Spark Therapeutics, Inc.-DK-SPK-21-00008

PATIENT
  Age: 11 Year
  Sex: Male
  Weight: 59 kg

DRUGS (10)
  1. VORETIGENE NEPARVOVEC [Suspect]
     Active Substance: VORETIGENE NEPARVOVEC
     Indication: Retinal dystrophy
     Dates: start: 20201111, end: 20201111
  2. VORETIGENE NEPARVOVEC [Suspect]
     Active Substance: VORETIGENE NEPARVOVEC
     Indication: RPE65 gene mutation
     Dates: start: 20201118, end: 20201118
  3. VORETIGENE NEPARVOVEC [Suspect]
     Active Substance: VORETIGENE NEPARVOVEC
     Indication: Retinal dystrophy
     Dates: start: 20201111, end: 20201111
  4. VORETIGENE NEPARVOVEC [Suspect]
     Active Substance: VORETIGENE NEPARVOVEC
     Indication: RPE65 gene mutation
     Dates: start: 20201118, end: 20201118
  5. OMEPRAZOLE [Concomitant]
     Active Substance: OMEPRAZOLE
     Indication: Product used for unknown indication
  6. CHOLECALCIFEROL [Concomitant]
     Active Substance: CHOLECALCIFEROL
     Indication: Product used for unknown indication
  7. CALCIUM [Concomitant]
     Active Substance: CALCIUM
     Indication: Product used for unknown indication
  8. CHLORAMPHENICOL\DEXAMETHASONE [Concomitant]
     Active Substance: CHLORAMPHENICOL\DEXAMETHASONE
     Indication: Product used for unknown indication
  9. PREDNISOLONE [Concomitant]
     Active Substance: PREDNISOLONE
     Indication: Product used for unknown indication
     Dates: start: 20201108, end: 20201122
  10. TRIAMCINOLON [Concomitant]
     Indication: Product used for unknown indication
     Dates: start: 20210119, end: 20210119

REACTIONS (4)
  - Vitritis [Recovered/Resolved]
  - Eye inflammation [Recovered/Resolved]
  - Blindness unilateral [Recovered/Resolved with Sequelae]
  - Retinoschisis [Not Recovered/Not Resolved]

NARRATIVE: CASE EVENT DATE: 20210104
